FAERS Safety Report 17024131 (Version 1)
Quarter: 2019Q4

REPORT INFORMATION
  Report Type: Spontaneous
  Country: US (occurrence: US)
  Receive Date: 20191113
  Receipt Date: 20191113
  Transmission Date: 20200122
  Serious: No
  Sender: FDA-Public Use
  Company Number: US-AUROBINDO-AUR-APL-2019-064702

PATIENT
  Age: 73 Year
  Sex: Female
  Weight: 63.4 kg

DRUGS (2)
  1. DORZOLAMIDE HYDROCHLORIDE+TIMOLOL MALEATE OPHTHALMIC SOLUTION USP 2%/0 [Suspect]
     Active Substance: DORZOLAMIDE HYDROCHLORIDE\TIMOLOL MALEATE
     Indication: GLAUCOMA
     Dosage: 01 GTT DROPS, TWO TIMES A DAY IN RIGHT EYE
     Route: 047
     Dates: start: 20190904, end: 20190905
  2. ALPHAGAN P [Concomitant]
     Active Substance: BRIMONIDINE TARTRATE
     Indication: PRODUCT USED FOR UNKNOWN INDICATION
     Dosage: 3 TIMES A DAY
     Route: 065

REACTIONS (1)
  - Ocular hyperaemia [Not Recovered/Not Resolved]

NARRATIVE: CASE EVENT DATE: 20190905
